FAERS Safety Report 19027936 (Version 1)
Quarter: 2021Q1

REPORT INFORMATION
  Report Type: Spontaneous
  Country: CN (occurrence: CN)
  Receive Date: 20210318
  Receipt Date: 20210318
  Transmission Date: 20210420
  Serious: Yes (Other)
  Sender: FDA-Public Use
  Company Number: CN-IPSEN BIOPHARMACEUTICALS, INC.-2021-07060

PATIENT
  Age: 34 Year
  Sex: Female

DRUGS (3)
  1. BOTULINUM TOXIN TYPE A [Suspect]
     Active Substance: BOTULINUM TOXIN TYPE A
     Indication: OFF LABEL USE
  2. BOTULINUM TOXIN TYPE A [Suspect]
     Active Substance: BOTULINUM TOXIN TYPE A
     Indication: SKIN WRINKLING
     Dosage: DOSE NOT REPORTED
     Route: 065
  3. BOTULINUM TOXIN TYPE A [Suspect]
     Active Substance: BOTULINUM TOXIN TYPE A
     Indication: SKIN WRINKLING

REACTIONS (3)
  - Mycobacterium abscessus infection [Recovered/Resolved]
  - Off label use [Unknown]
  - Suspected transmission of an infectious agent via product [Recovered/Resolved]
